FAERS Safety Report 22378816 (Version 3)
Quarter: 2023Q2

REPORT INFORMATION
  Report Type: Spontaneous
  Country: US (occurrence: US)
  Receive Date: 20230529
  Receipt Date: 20230607
  Transmission Date: 20230721
  Serious: No
  Sender: FDA-Public Use
  Company Number: US-SA-SAC20230526000223

PATIENT
  Sex: Female

DRUGS (1)
  1. DUPIXENT [Suspect]
     Active Substance: DUPILUMAB
     Dosage: 300 MG; FREQUENCY: OTHER
     Route: 058

REACTIONS (6)
  - COVID-19 [Unknown]
  - Rhinorrhoea [Unknown]
  - Asthenia [Unknown]
  - Pyrexia [Unknown]
  - Nasal congestion [Unknown]
  - Product dose omission in error [Unknown]
